FAERS Safety Report 9537502 (Version 1)
Quarter: 2013Q3

REPORT INFORMATION
  Report Type: Spontaneous
  Country: GR (occurrence: GR)
  Receive Date: 20130919
  Receipt Date: 20130919
  Transmission Date: 20140515
  Serious: Yes (Hospitalization)
  Sender: FDA-Public Use
  Company Number: GR-JNJFOC-20130907554

PATIENT
  Sex: Male

DRUGS (1)
  1. RISPERDAL [Suspect]
     Indication: PSYCHOTIC DISORDER
     Route: 048
     Dates: start: 2013

REACTIONS (3)
  - Respiratory tract infection [Not Recovered/Not Resolved]
  - Eosinophilia [Not Recovered/Not Resolved]
  - Pleural effusion [Not Recovered/Not Resolved]
